FAERS Safety Report 16073388 (Version 3)
Quarter: 2019Q2

REPORT INFORMATION
  Report Type: Report from Study
  Country: US (occurrence: US)
  Receive Date: 20190314
  Receipt Date: 20190605
  Transmission Date: 20190711
  Serious: Yes (Hospitalization)
  Sender: FDA-Public Use
  Company Number: US-EISAI MEDICAL RESEARCH-EC-2019-051982

PATIENT
  Age: 73 Year
  Sex: Male
  Weight: 66.8 kg

DRUGS (4)
  1. PEMBROLIZUMAB. [Suspect]
     Active Substance: PEMBROLIZUMAB
     Indication: ADENOCARCINOMA GASTRIC
     Route: 041
     Dates: start: 20190304, end: 20190304
  2. LENVATINIB [Suspect]
     Active Substance: LENVATINIB
     Route: 048
     Dates: start: 20190304, end: 20190307
  3. PERCOCET [Concomitant]
     Active Substance: ACETAMINOPHEN\OXYCODONE HYDROCHLORIDE
  4. LENVATINIB [Suspect]
     Active Substance: LENVATINIB
     Indication: ADENOCARCINOMA GASTRIC
     Route: 048
     Dates: start: 20190204, end: 20190303

REACTIONS (4)
  - Muscular weakness [Recovered/Resolved with Sequelae]
  - Confusional state [Recovered/Resolved]
  - Encephalopathy [Not Recovered/Not Resolved]
  - Fall [Recovered/Resolved]

NARRATIVE: CASE EVENT DATE: 20190211
